FAERS Safety Report 17681662 (Version 2)
Quarter: 2020Q2

REPORT INFORMATION
  Report Type: Spontaneous
  Country: US (occurrence: US)
  Receive Date: 20200417
  Receipt Date: 20200420
  Transmission Date: 20200714
  Serious: Yes (Hospitalization, Other)
  Sender: FDA-Public Use
  Company Number: US-ABBVIE-19S-163-2773246-00

PATIENT
  Sex: Female
  Weight: 30.2 kg

DRUGS (1)
  1. LUPRON DEPOT-PED [Suspect]
     Active Substance: LEUPROLIDE ACETATE
     Indication: PRECOCIOUS PUBERTY
     Route: 030
     Dates: start: 20190227, end: 20190506

REACTIONS (3)
  - Abscess sterile [Recovered/Resolved]
  - Abscess sterile [Unknown]
  - Abscess drainage [Unknown]

NARRATIVE: CASE EVENT DATE: 20190429
